FAERS Safety Report 14257871 (Version 7)
Quarter: 2020Q3

REPORT INFORMATION
  Report Type: Spontaneous
  Country: US (occurrence: US)
  Receive Date: 20171207
  Receipt Date: 20200716
  Transmission Date: 20201102
  Serious: No
  Sender: FDA-Public Use
  Company Number: US-AMGEN-USASP2017180861

PATIENT
  Age: 63 Year
  Sex: Male

DRUGS (1)
  1. ENBREL [Suspect]
     Active Substance: ETANERCEPT
     Indication: RHEUMATOID ARTHRITIS
     Dosage: UNK
     Route: 065

REACTIONS (8)
  - Therapeutic product effect incomplete [Unknown]
  - Lymphadenopathy [Unknown]
  - Lymph node pain [Unknown]
  - Depression [Unknown]
  - Pruritus [Unknown]
  - Fatigue [Unknown]
  - Drug hypersensitivity [Unknown]
  - Rash [Unknown]
